FAERS Safety Report 15723751 (Version 1)
Quarter: 2018Q4

REPORT INFORMATION
  Report Type: Report from Study
  Country: US (occurrence: US)
  Receive Date: 20181214
  Receipt Date: 20181214
  Transmission Date: 20190205
  Serious: Yes (Hospitalization)
  Sender: FDA-Public Use
  Company Number: US-ACTELION-A-US2016-136225

PATIENT
  Age: 70 Year
  Sex: Female

DRUGS (3)
  1. TREPROSTINIL DIOLAMIN [Suspect]
     Active Substance: TREPROSTINIL DIOLAMINE
     Indication: PULMONARY ARTERIAL HYPERTENSION
     Dosage: 2 UNK, UNK
     Route: 065
     Dates: start: 20151202
  2. OPSUMIT [Suspect]
     Active Substance: MACITENTAN
     Indication: PULMONARY ARTERIAL HYPERTENSION
     Dosage: 10 MG, QD
     Route: 048
     Dates: start: 20140730
  3. TREPROSTINIL DIOLAMIN [Suspect]
     Active Substance: TREPROSTINIL DIOLAMINE
     Dosage: 3 MG, BID
     Route: 065
     Dates: start: 20171102

REACTIONS (10)
  - Pain [Unknown]
  - Fatigue [Unknown]
  - Tachycardia [Unknown]
  - Pyrexia [Unknown]
  - Nausea [Unknown]
  - Pulmonary oedema [Unknown]
  - Frequent bowel movements [Not Recovered/Not Resolved]
  - Headache [Unknown]
  - Hypotension [Unknown]
  - Decreased appetite [Unknown]

NARRATIVE: CASE EVENT DATE: 201601
